FAERS Safety Report 12532033 (Version 1)
Quarter: 2016Q3

REPORT INFORMATION
  Report Type: Spontaneous
  Country: US (occurrence: US)
  Receive Date: 20160706
  Receipt Date: 20160706
  Transmission Date: 20161109
  Serious: No
  Sender: FDA-Public Use
  Company Number: US-GLAXOSMITHKLINE-US2016096046

PATIENT
  Sex: Female

DRUGS (1)
  1. VOLTAREN [Suspect]
     Active Substance: DICLOFENAC SODIUM
     Indication: ARTHRITIS
     Dosage: UNK (USING THE PRODUCT FOR THE PAST THREE WEEKS)
     Dates: start: 201606

REACTIONS (2)
  - Vision blurred [Not Recovered/Not Resolved]
  - Application site pain [Not Recovered/Not Resolved]
